FAERS Safety Report 8227309-8 (Version None)
Quarter: 2012Q1

REPORT INFORMATION
  Report Type: 
  Country: None (occurrence: None)
  Receive Date: 20120322
  Receipt Date: 20120316
  Transmission Date: 20120608
  Serious: Yes (Other)
  Sender: FDA-Public Use
  Company Number: PHHY2012NL024703

PATIENT
  Sex: Female

DRUGS (4)
  1. ZOMETA [Suspect]
     Dosage: 4 MG/100 ML SOLUTION FOR INFUSION EVERY 21 DAYS
     Route: 042
     Dates: start: 20120202
  2. ZOMETA [Suspect]
     Dosage: 4 MG/100 ML SOLUTION FOR INFUSION EVERY 21 DAYS
     Route: 042
     Dates: start: 20111020
  3. ZOMETA [Suspect]
     Indication: LUNG CANCER METASTATIC
     Dosage: 4 MG/100 ML SOLUTION FOR INFUSION EVERY 21 DAYS
     Route: 042
  4. ZOMETA [Suspect]
     Dosage: 4 MG/100 ML SOLUTION FOR INFUSION EVERY 21 DAYS
     Route: 042
     Dates: start: 20120301, end: 20120301

REACTIONS (1)
  - TERMINAL STATE [None]
